FAERS Safety Report 8254759-6 (Version None)
Quarter: 2012Q2

REPORT INFORMATION
  Report Type: 
  Country: None (occurrence: None)
  Receive Date: 20120403
  Receipt Date: 20120323
  Transmission Date: 20120825
  Serious: Yes (Other)
  Sender: FDA-Public Use
  Company Number: PHHY2012BE024718

PATIENT
  Sex: Female
  Weight: 60 kg

DRUGS (14)
  1. GLEEVEC [Suspect]
     Indication: GASTROINTESTINAL STROMAL TUMOUR
     Dosage: 400 MG, DAILY
     Dates: start: 20101001, end: 20101208
  2. GLEEVEC [Suspect]
     Dosage: 400 MG, DAILY
  3. LASIX [Concomitant]
     Dosage: 40 MG, DAILY
  4. CORDARONE [Concomitant]
     Indication: ATRIAL TACHYCARDIA
     Dosage: 100 MG, DAILY
     Dates: start: 20090301
  5. GLEEVEC [Suspect]
     Dosage: 400 MG, DAILY
     Dates: start: 20111101
  6. DIURETICS [Concomitant]
  7. ALPRAZOLAM [Concomitant]
     Dosage: 0.5 MG, DAILY
  8. GLEEVEC [Suspect]
     Dosage: UNK
     Dates: start: 20101221
  9. GLEEVEC [Suspect]
     Dosage: 100 MG, DAILY
  10. BUMETANIDE [Concomitant]
     Dosage: 2.5 MG, DAILY
  11. BISOPROLOL FUMARATE [Concomitant]
     Dosage: 5 MG, DAILY
  12. TAMBOCOR [Concomitant]
     Dosage: 50 MG, DAILY
  13. GLEEVEC [Suspect]
     Dosage: 400 MG, DAILY
     Dates: start: 20110301
  14. MARCUMAR [Concomitant]

REACTIONS (17)
  - ALVEOLITIS ALLERGIC [None]
  - OEDEMA PERIPHERAL [None]
  - WEIGHT INCREASED [None]
  - NEOPLASM PROGRESSION [None]
  - PERIORBITAL OEDEMA [None]
  - DYSGEUSIA [None]
  - HAEMOGLOBIN DECREASED [None]
  - LUNG INFILTRATION [None]
  - DECREASED APPETITE [None]
  - PLEURAL EFFUSION [None]
  - VOMITING [None]
  - ACTIVATED PARTIAL THROMBOPLASTIN TIME SHORTENED [None]
  - NEOPLASM MALIGNANT [None]
  - CHEST PAIN [None]
  - DYSPNOEA [None]
  - FATIGUE [None]
  - BLOOD CREATINE INCREASED [None]
